FAERS Safety Report 12165929 (Version 3)
Quarter: 2018Q1

REPORT INFORMATION
  Report Type: Report from Study
  Country: US (occurrence: US)
  Receive Date: 20160309
  Receipt Date: 20180307
  Transmission Date: 20180508
  Serious: No
  Sender: FDA-Public Use
  Company Number: PHEH2016US005680

PATIENT
  Sex: Female
  Weight: 62.59 kg

DRUGS (1)
  1. GILENYA [Suspect]
     Active Substance: FINGOLIMOD HYDROCHLORIDE
     Indication: MULTIPLE SCLEROSIS
     Dosage: 0.5 MG, QD
     Route: 048
     Dates: start: 20150328

REACTIONS (3)
  - White blood cell count decreased [Not Recovered/Not Resolved]
  - Vomiting [Unknown]
  - Malaise [Unknown]
